FAERS Safety Report 8097255-1 (Version None)
Quarter: 2012Q1

REPORT INFORMATION
  Report Type: 
  Country: None (occurrence: None)
  Receive Date: 20120128
  Receipt Date: 20110628
  Transmission Date: 20120608
  Serious: No
  Sender: FDA-Public Use
  Company Number: US-ABBOTT-11P-163-0835090-00

PATIENT
  Age: 39 Year
  Sex: Male

DRUGS (6)
  1. PROBIOTICS [Concomitant]
     Indication: PRODUCT USED FOR UNKNOWN INDICATION
  2. VITAMIN TAB [Concomitant]
     Indication: PRODUCT USED FOR UNKNOWN INDICATION
     Dosage: DAILY
  3. HUMIRA [Suspect]
     Dosage: 2 INJECTIONS
  4. ASACOL [Concomitant]
     Indication: PRODUCT USED FOR UNKNOWN INDICATION
  5. HUMIRA [Suspect]
     Indication: CROHN'S DISEASE
  6. HUMIRA [Suspect]

REACTIONS (9)
  - RASH [None]
  - RASH GENERALISED [None]
  - THERAPY REGIMEN CHANGED [None]
  - INTESTINAL OBSTRUCTION [None]
  - JOINT SWELLING [None]
  - MALAISE [None]
  - DRUG DISPENSING ERROR [None]
  - STAPHYLOCOCCAL INFECTION [None]
  - ULCERATIVE KERATITIS [None]
